FAERS Safety Report 9265391 (Version 4)
Quarter: 2013Q2

REPORT INFORMATION
  Report Type: Report from Study
  Country: FR (occurrence: FR)
  Receive Date: 20130501
  Receipt Date: 20130611
  Transmission Date: 20140414
  Serious: Yes (Hospitalization)
  Sender: FDA-Public Use
  Company Number: FR-ROCHE-1219500

PATIENT
  Age: 77 Year
  Sex: Female
  Weight: 83 kg

DRUGS (14)
  1. VISMODEGIB [Suspect]
     Indication: CHRONIC LYMPHOCYTIC LEUKAEMIA
     Route: 048
     Dates: start: 20130226, end: 20130424
  2. ZELITREX [Concomitant]
     Indication: HERPES ZOSTER
     Route: 065
     Dates: start: 201208
  3. BACTRIM FORTE [Concomitant]
     Indication: INFECTION PROPHYLAXIS
     Route: 065
     Dates: start: 201208
  4. CANDESARTAN [Concomitant]
     Indication: HYPERTENSION
     Route: 065
     Dates: start: 201302
  5. KEPPRA [Concomitant]
     Indication: EPILEPSY
     Route: 065
  6. LEDERFOLINE [Concomitant]
     Indication: ANTIFUNGAL PROPHYLAXIS
     Route: 065
     Dates: start: 201208
  7. DIFFU K [Concomitant]
     Indication: HYPOKALAEMIA
     Route: 065
     Dates: start: 201208
  8. FLUDEX (FRANCE) [Concomitant]
     Indication: HYPERTENSION
     Route: 065
     Dates: start: 201208
  9. DUPHALAC [Concomitant]
     Indication: CONSTIPATION PROPHYLAXIS
     Route: 065
     Dates: start: 201208
  10. ATACAND [Concomitant]
     Indication: HYPERTENSION
     Route: 065
     Dates: start: 201208
  11. SOLU-MEDROL [Concomitant]
     Route: 042
  12. MOPRAL (FRANCE) [Concomitant]
     Route: 065
  13. ISOPTIN [Concomitant]
     Route: 065
  14. FLIXOTIDE [Concomitant]
     Route: 065

REACTIONS (1)
  - Pulmonary embolism [Recovered/Resolved]
